FAERS Safety Report 17868409 (Version 1)
Quarter: 2020Q2

REPORT INFORMATION
  Report Type: Spontaneous
  Country: TH (occurrence: TH)
  Receive Date: 20200606
  Receipt Date: 20200606
  Transmission Date: 20200714
  Serious: Yes (Life-Threatening, Other)
  Sender: FDA-Public Use
  Company Number: TH-B.I. PHARMACEUTICALS,INC./RIDGEFIELD-2020-BI-028405

PATIENT
  Age: 60 Year
  Sex: Male

DRUGS (2)
  1. STREPTOKINASE [Suspect]
     Active Substance: STREPTOKINASE
     Indication: ACUTE MYOCARDIAL INFARCTION
     Route: 065
  2. PRADAXA [Suspect]
     Active Substance: DABIGATRAN ETEXILATE MESYLATE
     Indication: ATRIAL FIBRILLATION
     Route: 065

REACTIONS (3)
  - Acute myocardial infarction [Unknown]
  - Upper gastrointestinal haemorrhage [Recovered/Resolved]
  - Cardiac failure acute [Unknown]
